FAERS Safety Report 13682094 (Version 3)
Quarter: 2017Q4

REPORT INFORMATION
  Report Type: Spontaneous
  Country: JP (occurrence: JP)
  Receive Date: 20170623
  Receipt Date: 20171003
  Transmission Date: 20180320
  Serious: Yes (Hospitalization, Other)
  Sender: FDA-Public Use
  Company Number: JP-JNJFOC-20170618092

PATIENT
  Age: 13 Year
  Sex: Male
  Weight: 45 kg

DRUGS (9)
  1. REMICADE [Suspect]
     Active Substance: INFLIXIMAB
     Indication: CROHN^S DISEASE
     Route: 042
     Dates: start: 20170602, end: 20170602
  2. LOXOPROFEN [Concomitant]
     Active Substance: LOXOPROFEN
     Indication: ABDOMINAL PAIN
     Route: 048
     Dates: start: 20170506, end: 20170513
  3. REMICADE [Suspect]
     Active Substance: INFLIXIMAB
     Indication: CROHN^S DISEASE
     Route: 042
     Dates: start: 20170616, end: 20170616
  4. VANCOMYCIN HYDROCHLORIDE. [Concomitant]
     Active Substance: VANCOMYCIN HYDROCHLORIDE
     Indication: PSEUDOMEMBRANOUS COLITIS
     Route: 048
     Dates: start: 20170516, end: 20170525
  5. FLAGYL [Concomitant]
     Active Substance: METRONIDAZOLE\METRONIDAZOLE HYDROCHLORIDE
     Indication: PSEUDOMEMBRANOUS COLITIS
     Route: 048
     Dates: start: 20170509, end: 20170518
  6. MESALAZINE [Concomitant]
     Active Substance: MESALAMINE
     Indication: CROHN^S DISEASE
     Route: 048
     Dates: start: 20170518, end: 20170526
  7. MESALAZINE [Concomitant]
     Active Substance: MESALAMINE
     Indication: CROHN^S DISEASE
     Route: 048
     Dates: start: 20170527
  8. MIYA-BM [Concomitant]
     Active Substance: CLOSTRIDIUM BUTYRICUM SPORES STRAIN M-55
     Indication: DIARRHOEA
     Route: 048
     Dates: start: 20170522
  9. JUZENTAIHOTO [Concomitant]
     Active Substance: HERBALS
     Route: 048
     Dates: start: 20170428, end: 20170511

REACTIONS (2)
  - Guillain-Barre syndrome [Recovering/Resolving]
  - Cytomegalovirus infection [Unknown]

NARRATIVE: CASE EVENT DATE: 20170617
